FAERS Safety Report 6735559-2 (Version None)
Quarter: 2010Q2

REPORT INFORMATION
  Report Type: 
  Country: None (occurrence: None)
  Receive Date: 20100521
  Receipt Date: 20100512
  Transmission Date: 20101027
  Serious: Yes (Hospitalization)
  Sender: FDA-Public Use
  Company Number: US-JNJFOC-20100506212

PATIENT
  Sex: Female

DRUGS (2)
  1. NUCYNTA [Suspect]
     Indication: WRIST FRACTURE
     Route: 065
  2. PERCOCET [Concomitant]
     Indication: PAIN
     Route: 065

REACTIONS (2)
  - CONFUSIONAL STATE [None]
  - DELIRIUM [None]
